FAERS Safety Report 9321362 (Version 1)
Quarter: 2013Q2

REPORT INFORMATION
  Report Type: Spontaneous
  Country: JP (occurrence: None)
  Receive Date: 20130528
  Receipt Date: 20130528
  Transmission Date: 20140414
  Serious: Yes (Hospitalization, Other)
  Sender: FDA-Public Use
  Company Number: 2013P1006118

PATIENT
  Sex: Male

DRUGS (2)
  1. AMPHETAMINE [Suspect]
     Route: 054
  2. METHAMPHETAMINE [Suspect]
     Route: 054

REACTIONS (4)
  - Convulsion [None]
  - Tachycardia [None]
  - Toxicity to various agents [None]
  - Intentional drug misuse [None]
